FAERS Safety Report 7048483-5 (Version None)
Quarter: 2010Q4

REPORT INFORMATION
  Report Type: 
  Country: None (occurrence: None)
  Receive Date: 20101015
  Receipt Date: 20101015
  Transmission Date: 20110411
  Serious: Yes (Hospitalization)
  Sender: FDA-Public Use
  Company Number: None

PATIENT
  Sex: Female
  Weight: 95.5 kg

DRUGS (3)
  1. CARBOPLATIN [Suspect]
     Dosage: 700 MG
     Dates: end: 20100930
  2. TAXOTERE [Suspect]
     Dosage: 125 MG
     Dates: end: 20100930
  3. HERCEPTIN [Suspect]
     Dosage: 402 MG
     Dates: end: 20101007

REACTIONS (8)
  - ABDOMINAL PAIN [None]
  - ASTHENIA [None]
  - DEHYDRATION [None]
  - DIARRHOEA [None]
  - HYPOKALAEMIA [None]
  - NAUSEA [None]
  - RENAL FAILURE ACUTE [None]
  - VOMITING [None]
